FAERS Safety Report 4751157-4 (Version None)
Quarter: 2005Q3

REPORT INFORMATION
  Report Type: 
  Country: None (occurrence: None)
  Receive Date: 20050822
  Receipt Date: 20050816
  Transmission Date: 20060218
  Serious: Yes (Hospitalization, Other)
  Sender: FDA-Public Use
  Company Number: 2005044592

PATIENT
  Age: 73 Year
  Sex: Male

DRUGS (4)
  1. LIPITOR [Suspect]
     Indication: ILL-DEFINED DISORDER
  2. CARDURA [Suspect]
     Indication: ILL-DEFINED DISORDER
  3. RELAFEN [Suspect]
     Indication: ARTHRITIS
     Dosage: 1000 MG (2 IN 1 D)
  4. HYDROCHLOROTHIAZIDE [Concomitant]

REACTIONS (1)
  - HAEMORRHAGIC STROKE [None]
